FAERS Safety Report 5116620-5 (Version None)
Quarter: 2006Q3

REPORT INFORMATION
  Report Type: 
  Country: None (occurrence: None)
  Receive Date: 20060928
  Receipt Date: 20060529
  Transmission Date: 20061208
  Serious: Yes (Other)
  Sender: FDA-Public Use
  Company Number: DE-AVENTIS-200611574DE

PATIENT
  Age: 51 Year
  Sex: Male

DRUGS (7)
  1. KETEK [Suspect]
     Indication: RESPIRATORY TRACT INFECTION
     Route: 048
     Dates: start: 20021022, end: 20021027
  2. KETEK [Suspect]
     Route: 048
     Dates: start: 20021119, end: 20021124
  3. KLACID [Concomitant]
     Dosage: DOSE: NOT REPORTED
     Dates: start: 20020101, end: 20020101
  4. ERYTHROMYCIN [Concomitant]
     Indication: RESPIRATORY TRACT INFECTION
     Dosage: DOSE: NOT REPORTED
     Dates: start: 20021028, end: 20021101
  5. ERYTHROMYCIN [Concomitant]
     Indication: SINUSITIS
     Dosage: DOSE: NOT REPORTED
     Dates: start: 20021028, end: 20021101
  6. OLYNTH [Concomitant]
     Indication: RESPIRATORY TRACT INFECTION
     Dosage: DOSE: NOT REPORTED
     Dates: start: 20021028
  7. ACC [Concomitant]
     Indication: RESPIRATORY TRACT INFECTION
     Dosage: DOSE: NOT REPORTED
     Dates: start: 20021028

REACTIONS (4)
  - MYALGIA [None]
  - PLEURISY [None]
  - RESPIRATORY FAILURE [None]
  - RHEUMATOID FACTOR INCREASED [None]
